FAERS Safety Report 9687206 (Version 2)
Quarter: 2013Q4

REPORT INFORMATION
  Report Type: Report from Study
  Country: US (occurrence: US)
  Receive Date: 20131113
  Receipt Date: 20131118
  Transmission Date: 20140711
  Serious: Yes (Death, Life-Threatening, Hospitalization)
  Sender: FDA-Public Use
  Company Number: US-009507513-1311USA004813

PATIENT
  Age: 19 Year
  Sex: Male
  Weight: 45.8 kg

DRUGS (2)
  1. VORINOSTAT [Suspect]
     Indication: NEUROBLASTOMA
     Dosage: 180 MG/M2,  DAYS 1-4 AND 8-11
     Route: 048
     Dates: start: 20110714, end: 20110724
  2. ISOTRETINOIN [Suspect]
     Indication: NEUROBLASTOMA
     Dosage: 80 MG/M2, BID ON DAYS1-14
     Route: 048
     Dates: start: 20110714, end: 20110727

REACTIONS (4)
  - Respiratory failure [Fatal]
  - Leukaemia [Unknown]
  - Neck pain [Unknown]
  - Pyrexia [Unknown]
